FAERS Safety Report 17624466 (Version 1)
Quarter: 2020Q2

REPORT INFORMATION
  Report Type: Report from Study
  Country: None (occurrence: DE)
  Receive Date: 20200403
  Receipt Date: 20200403
  Transmission Date: 20200713
  Serious: Yes (Hospitalization)
  Sender: FDA-Public Use
  Company Number: DE-ABBVIE-18P-062-3121660-00

PATIENT
  Age: 68 Year
  Sex: Male
  Weight: 86 kg

DRUGS (27)
  1. BORTEZOMIB. [Concomitant]
     Active Substance: BORTEZOMIB
     Indication: DIFFUSE LARGE B-CELL LYMPHOMA
     Dosage: CYCLE 1
     Route: 042
     Dates: start: 20180821, end: 20180829
  2. FILGRASTIM [Concomitant]
     Active Substance: FILGRASTIM
     Indication: NEUTROPENIA
     Dosage: 48.000.000 U/0.5ML
     Route: 065
  3. BORTEZOMIB. [Concomitant]
     Active Substance: BORTEZOMIB
     Route: 042
     Dates: end: 20181006
  4. IBRUTINIB [Suspect]
     Active Substance: IBRUTINIB
     Indication: DIFFUSE LARGE B-CELL LYMPHOMA
     Dosage: CYCLE 1
     Route: 048
     Dates: start: 20180821, end: 20180829
  5. IBRUTINIB [Suspect]
     Active Substance: IBRUTINIB
     Route: 048
     Dates: end: 20181006
  6. RITUXIMAB. [Concomitant]
     Active Substance: RITUXIMAB
     Dosage: CYCLE 2
     Route: 065
     Dates: start: 20180915, end: 20180924
  7. DOXORUBICIN [Concomitant]
     Active Substance: DOXORUBICIN
     Dosage: CYCLE 2
     Route: 065
     Dates: start: 20180915, end: 20180924
  8. PREDNISONE. [Concomitant]
     Active Substance: PREDNISONE
     Dosage: CYCLE 2
     Route: 065
     Dates: start: 20180915, end: 20180924
  9. HUMAN INSULINK [Concomitant]
     Active Substance: INSULIN HUMAN
     Indication: TYPE 2 DIABETES MELLITUS
     Dosage: 300 IU/3ML,FOR BLOOD SUGAR LEVELS } 180 MG/DL: 1 IU PER 10 MG/DL BLOOD SUGAR INCREASE
     Route: 065
  10. METOPROLOL SUCCINATE. [Concomitant]
     Active Substance: METOPROLOL SUCCINATE
     Indication: PRODUCT USED FOR UNKNOWN INDICATION
     Route: 065
  11. SIMVASTATIN. [Concomitant]
     Active Substance: SIMVASTATIN
     Indication: HYPERTENSION
     Route: 065
  12. IBRUTINIB [Suspect]
     Active Substance: IBRUTINIB
     Dosage: CYCLE 2
     Route: 048
     Dates: start: 20180915, end: 20180924
  13. CYCLOPHOSPHAMIDE. [Concomitant]
     Active Substance: CYCLOPHOSPHAMIDE
     Dosage: CYCLE 2
     Route: 065
     Dates: start: 20180915, end: 20180924
  14. VINCRISTINE [Concomitant]
     Active Substance: VINCRISTINE
     Dosage: CYCLE 2
     Route: 065
     Dates: start: 20180915, end: 20180924
  15. DOXORUBICIN [Concomitant]
     Active Substance: DOXORUBICIN
     Indication: DIFFUSE LARGE B-CELL LYMPHOMA
     Dosage: CYCLE 1
     Route: 065
     Dates: start: 20180821, end: 20180829
  16. PREDNISONE. [Concomitant]
     Active Substance: PREDNISONE
     Indication: DIFFUSE LARGE B-CELL LYMPHOMA
     Dosage: CYCLE 1
     Route: 065
     Dates: start: 20180821, end: 20180829
  17. ALLOPURINOL. [Concomitant]
     Active Substance: ALLOPURINOL
     Indication: PROPHYLAXIS
     Route: 065
  18. GLIMEPIRIDE. [Concomitant]
     Active Substance: GLIMEPIRIDE
     Indication: TYPE 2 DIABETES MELLITUS
     Route: 065
  19. COTRIMOXAZOLE [Concomitant]
     Active Substance: SULFAMETHOXAZOLE\TRIMETHOPRIM
     Indication: INFECTION PROPHYLAXIS
     Route: 065
  20. ACETYLSALICYLIC ACID [Concomitant]
     Active Substance: ASPIRIN
     Indication: INFECTION PROPHYLAXIS
     Route: 065
  21. AMPHOTERICIN B. [Concomitant]
     Active Substance: AMPHOTERICIN B
     Indication: INFECTION PROPHYLAXIS
     Dosage: 100MG/1ML, 4 TO 6 TIMES
     Route: 065
  22. RAMIPRIL. [Concomitant]
     Active Substance: RAMIPRIL
     Indication: HYPERTENSION
     Route: 065
  23. BORTEZOMIB. [Concomitant]
     Active Substance: BORTEZOMIB
     Dosage: CYCLE 2
     Route: 042
     Dates: start: 20180915, end: 20180924
  24. CYCLOPHOSPHAMIDE. [Concomitant]
     Active Substance: CYCLOPHOSPHAMIDE
     Indication: DIFFUSE LARGE B-CELL LYMPHOMA
     Dosage: CYCLE 1
     Route: 065
     Dates: start: 20180821, end: 20180829
  25. RITUXIMAB. [Concomitant]
     Active Substance: RITUXIMAB
     Indication: DIFFUSE LARGE B-CELL LYMPHOMA
     Dosage: CYCLE 1
     Route: 065
     Dates: start: 20180821, end: 20180829
  26. VINCRISTINE [Concomitant]
     Active Substance: VINCRISTINE
     Indication: DIFFUSE LARGE B-CELL LYMPHOMA
     Dosage: CYCLE 1
     Route: 065
     Dates: start: 20180821, end: 20180829
  27. INSULIN GLARGINE [Concomitant]
     Active Substance: INSULIN GLARGINE
     Indication: TYPE 2 DIABETES MELLITUS
     Dosage: 300 IU/3ML
     Route: 065

REACTIONS (1)
  - Pleural effusion [Recovered/Resolved]

NARRATIVE: CASE EVENT DATE: 20181005
